FAERS Safety Report 9696608 (Version 4)
Quarter: 2014Q1

REPORT INFORMATION
  Report Type: Spontaneous
  Country: US (occurrence: US)
  Receive Date: 20131119
  Receipt Date: 20140210
  Transmission Date: 20141002
  Serious: Yes (Hospitalization, Other)
  Sender: FDA-Public Use
  Company Number: US-BAXTER-2013BAX045061

PATIENT
  Sex: Female

DRUGS (3)
  1. DIANEAL LOW CALCIUM [Suspect]
     Indication: RENAL FAILURE CHRONIC
     Route: 033
     Dates: start: 2013
  2. DIANEAL LOW CALCIUM [Suspect]
     Route: 033
     Dates: start: 2013
  3. DIANEAL LOW CALCIUM [Suspect]
     Indication: RENAL FAILURE CHRONIC
     Route: 033
     Dates: start: 2013

REACTIONS (6)
  - Pelvic fracture [Recovering/Resolving]
  - Fall [Recovering/Resolving]
  - Back injury [Recovering/Resolving]
  - Overdose [Recovered/Resolved]
  - Drug hypersensitivity [Recovering/Resolving]
  - Muscle spasms [Recovering/Resolving]
